FAERS Safety Report 7108700-X (Version None)
Quarter: 2010Q4

REPORT INFORMATION
  Report Type: 
  Country: None (occurrence: None)
  Receive Date: 20101115
  Receipt Date: 20101115
  Transmission Date: 20110411
  Serious: Yes (Other)
  Sender: FDA-Public Use
  Company Number: None

PATIENT
  Age: 27 Year
  Sex: Female
  Weight: 72.5755 kg

DRUGS (2)
  1. TOBRADEX ST [Suspect]
     Indication: CONJUNCTIVITIS INFECTIVE
     Dosage: 1 DROP 4X DAY OPHTHALMIC
     Route: 047
     Dates: start: 20101104, end: 20101113
  2. TOBRADEX ST [Suspect]
     Indication: EYE IRRITATION
     Dosage: 1 DROP 4X DAY OPHTHALMIC
     Route: 047
     Dates: start: 20101104, end: 20101113

REACTIONS (9)
  - BEDRIDDEN [None]
  - CONDITION AGGRAVATED [None]
  - EYE HAEMORRHAGE [None]
  - EYE IRRITATION [None]
  - HEADACHE [None]
  - MALAISE [None]
  - NASOPHARYNGITIS [None]
  - OCULAR HYPERAEMIA [None]
  - VOMITING [None]
